FAERS Safety Report 6667337-7 (Version None)
Quarter: 2010Q2

REPORT INFORMATION
  Report Type: 
  Country: None (occurrence: None)
  Receive Date: 20100401
  Receipt Date: 20100401
  Transmission Date: 20101027
  Serious: Yes (Hospitalization)
  Sender: FDA-Public Use
  Company Number: None

PATIENT
  Sex: Female
  Weight: 110.3 kg

DRUGS (1)
  1. CYTARABINE [Suspect]
     Dosage: 41400 MG
     Dates: end: 20090128

REACTIONS (5)
  - CLOSTRIDIUM DIFFICILE COLITIS [None]
  - FEBRILE NEUTROPENIA [None]
  - OROPHARYNGEAL PAIN [None]
  - PNEUMONIA [None]
  - RASH [None]
